FAERS Safety Report 9283457 (Version 1)
Quarter: 2013Q2

REPORT INFORMATION
  Report Type: Spontaneous
  Country: US (occurrence: US)
  Receive Date: 20130510
  Receipt Date: 20130510
  Transmission Date: 20140414
  Serious: No
  Sender: FDA-Public Use
  Company Number: US-GLAXOSMITHKLINE-A1009973A

PATIENT
  Age: 82 Year
  Sex: Female

DRUGS (6)
  1. TYKERB [Suspect]
     Indication: PRODUCT USED FOR UNKNOWN INDICATION
     Dosage: 1000MG PER DAY
     Route: 048
     Dates: start: 20120925, end: 20121215
  2. NORVASC [Concomitant]
  3. TOPROL XL [Concomitant]
  4. FISH OIL [Concomitant]
  5. LEVOTHYROXINE [Concomitant]
  6. ALEVE [Concomitant]

REACTIONS (3)
  - Diarrhoea [Unknown]
  - Decreased appetite [Unknown]
  - Rash [Unknown]
